FAERS Safety Report 9918666 (Version 4)
Quarter: 2014Q2

REPORT INFORMATION
  Report Type: Spontaneous
  Country: IT (occurrence: IT)
  Receive Date: 20140224
  Receipt Date: 20140630
  Transmission Date: 20141212
  Serious: Yes (Hospitalization)
  Sender: FDA-Public Use
  Company Number: IT-JNJFOC-20140212882

PATIENT
  Age: 1 Year
  Sex: Male
  Weight: 12 kg

DRUGS (4)
  1. IBUPROFEN [Suspect]
     Route: 048
  2. IBUPROFEN [Suspect]
     Indication: PYREXIA
     Route: 048
     Dates: start: 20140202, end: 20140203
  3. ACETAMINOPHEN [Suspect]
     Route: 054
  4. ACETAMINOPHEN [Suspect]
     Indication: PYREXIA
     Route: 054
     Dates: start: 20140202, end: 20140203

REACTIONS (1)
  - Rhabdomyolysis [Recovered/Resolved]
